FAERS Safety Report 6725821-1 (Version None)
Quarter: 2010Q2

REPORT INFORMATION
  Report Type: 
  Country: None (occurrence: None)
  Receive Date: 20100514
  Receipt Date: 20100503
  Transmission Date: 20101027
  Serious: Yes (Hospitalization, Other)
  Sender: FDA-Public Use
  Company Number: PHHY2010BR28661

PATIENT
  Sex: Female

DRUGS (2)
  1. DIOVAN [Suspect]
     Indication: HYPERTENSION
     Dosage: 1 DF, QD
     Route: 048
     Dates: start: 20090601
  2. SOMALGIN CARDIO [Concomitant]
     Dosage: 1 DF, QD
     Route: 048
     Dates: start: 20090101

REACTIONS (3)
  - BLOOD PRESSURE INCREASED [None]
  - CATHETERISATION CARDIAC [None]
  - HEADACHE [None]
